FAERS Safety Report 9475784 (Version 1)
Quarter: 2013Q3

REPORT INFORMATION
  Report Type: Spontaneous
  Country: US (occurrence: None)
  Receive Date: 20130822
  Receipt Date: 20130822
  Transmission Date: 20140515
  Serious: Yes (Hospitalization)
  Sender: FDA-Public Use
  Company Number: None

PATIENT
  Age: 68 Year
  Sex: Female
  Weight: 47.9 kg

DRUGS (1)
  1. CETUXIMAB [Suspect]

REACTIONS (7)
  - Metabolic acidosis [None]
  - Respiratory distress [None]
  - Pneumonitis [None]
  - Lung infiltration [None]
  - Infection [None]
  - Renal failure acute [None]
  - Thrombocytopenia [None]
